FAERS Safety Report 8813911 (Version 1)
Quarter: 2012Q4

REPORT INFORMATION
  Report Type: 
  Country: US (occurrence: US)
  Receive Date: 20120928
  Receipt Date: 20120928
  Transmission Date: 20130627
  Serious: Yes (Other)
  Sender: FDA-Public Use
  Company Number: US-ROCHE-1130246

PATIENT
  Sex: Female

DRUGS (14)
  1. HERCEPTIN [Suspect]
     Indication: BREAST CANCER FEMALE
     Dosage: unknown
     Route: 065
  2. HERCEPTIN [Suspect]
     Route: 065
     Dates: start: 200302
  3. AVASTIN [Suspect]
     Indication: PRODUCT USED FOR UNKNOWN INDICATION
     Route: 065
  4. AVASTIN [Suspect]
     Route: 065
     Dates: start: 20060317
  5. AVASTIN [Suspect]
     Route: 065
     Dates: start: 20060416
  6. CYCLOPHOSPHAMIDE [Concomitant]
  7. METHOTREXATE [Concomitant]
  8. FLUOROURACIL [Concomitant]
  9. ADRIAMYCIN [Concomitant]
     Route: 065
  10. CYTOXAN [Concomitant]
     Route: 065
  11. TAXOL [Concomitant]
  12. GEMZAR [Concomitant]
  13. NAVELBINE [Concomitant]
  14. TAXOTERE [Concomitant]
     Route: 065
     Dates: start: 200302

REACTIONS (1)
  - Disease progression [Unknown]
